FAERS Safety Report 4718888-3 (Version None)
Quarter: 2005Q3

REPORT INFORMATION
  Report Type: 
  Country: None (occurrence: None)
  Receive Date: 20050719
  Receipt Date: 20050706
  Transmission Date: 20060218
  Serious: Yes (Other)
  Sender: FDA-Public Use
  Company Number: 2005098980

PATIENT
  Age: 80 Year
  Sex: 0

DRUGS (5)
  1. CARDENALIN (DOXAZOSIN) [Suspect]
     Indication: ILL-DEFINED DISORDER
     Dosage: ORAL
     Route: 048
  2. NIVADIL (NILVADIPINE) [Suspect]
     Indication: ILL-DEFINED DISORDER
     Dosage: ORAL
     Route: 048
  3. FLOMOX (CEFACPENE PIVOXIL HYDROCHLORIDE) [Suspect]
     Indication: NASOPHARYNGITIS
     Dosage: ORAL
     Route: 048
  4. DASEN (SERRAPETPTASE) [Concomitant]
     Indication: NASOPHARYNGITIS
  5. MEDICON (DEXTROMETHORPHAN HYDROBROMIDE) [Suspect]
     Indication: NASOPHARYNGITIS
     Dosage: ORAL
     Route: 048

REACTIONS (1)
  - ANGLE CLOSURE GLAUCOMA [None]
